FAERS Safety Report 4725714-5 (Version None)
Quarter: 2005Q3

REPORT INFORMATION
  Report Type: 
  Country: None (occurrence: None)
  Receive Date: 20050722
  Receipt Date: 20050722
  Transmission Date: 20060218
  Serious: Yes (Life-Threatening, Hospitalization)
  Sender: FDA-Public Use
  Company Number: None

PATIENT
  Age: 37 Year
  Sex: Female
  Weight: 63.5036 kg

DRUGS (2)
  1. ORTHO EVRA [Suspect]
     Indication: HORMONE LEVEL ABNORMAL
     Dosage: 1 PATCH WEEKLY TOPICAL
     Route: 061
     Dates: start: 20050410, end: 20050721
  2. ORTHO EVRA [Suspect]
     Indication: MENSTRUATION IRREGULAR
     Dosage: 1 PATCH WEEKLY TOPICAL
     Route: 061
     Dates: start: 20050410, end: 20050721

REACTIONS (1)
  - PULMONARY EMBOLISM [None]
